FAERS Safety Report 13845381 (Version 27)
Quarter: 2019Q2

REPORT INFORMATION
  Report Type: Report from Study
  Country: CA (occurrence: CA)
  Receive Date: 20170808
  Receipt Date: 20190622
  Transmission Date: 20190711
  Serious: Yes (Hospitalization, Other)
  Sender: FDA-Public Use
  Company Number: CA-BRISTOL-MYERS SQUIBB COMPANY-BMS-2017-069981

PATIENT
  Age: 71 Year
  Sex: Female
  Weight: 77.1 kg

DRUGS (4)
  1. ABATACEPT [Suspect]
     Active Substance: ABATACEPT
     Indication: PRODUCT USED FOR UNKNOWN INDICATION
     Dosage: 125 MG, QWK
     Route: 058
     Dates: start: 20180202
  2. ABATACEPT [Suspect]
     Active Substance: ABATACEPT
     Indication: RHEUMATOID ARTHRITIS
     Dosage: 125 MG, QWK
     Route: 058
     Dates: start: 20170510
  3. ABATACEPT [Suspect]
     Active Substance: ABATACEPT
     Indication: PRODUCT USED FOR UNKNOWN INDICATION
     Dosage: 120 MILLIGRAM, QWK
     Route: 058
     Dates: start: 20170510
  4. METOTREXATE [Concomitant]
     Active Substance: METHOTREXATE SODIUM
     Indication: PRODUCT USED FOR UNKNOWN INDICATION
     Dosage: UNK
     Route: 016

REACTIONS (19)
  - Localised infection [Recovered/Resolved]
  - Arthropathy [Unknown]
  - Tooth disorder [Unknown]
  - Limb injury [Recovering/Resolving]
  - Weight increased [Unknown]
  - Oedema peripheral [Recovering/Resolving]
  - Breast cyst [Unknown]
  - Urinary tract infection [Recovered/Resolved]
  - Breast abscess [Recovering/Resolving]
  - Wound infection [Recovering/Resolving]
  - Rash generalised [Recovering/Resolving]
  - Blood pressure increased [Recovered/Resolved]
  - Fatigue [Unknown]
  - Erythema [Unknown]
  - Pain in extremity [Unknown]
  - Cough [Recovering/Resolving]
  - Rheumatoid arthritis [Recovering/Resolving]
  - Pruritus generalised [Not Recovered/Not Resolved]
  - Pruritus [Not Recovered/Not Resolved]

NARRATIVE: CASE EVENT DATE: 20170811
